FAERS Safety Report 6660526-7 (Version None)
Quarter: 2010Q1

REPORT INFORMATION
  Report Type: 
  Country: None (occurrence: None)
  Receive Date: 20100331
  Receipt Date: 20100325
  Transmission Date: 20100710
  Serious: Yes (Other)
  Sender: FDA-Public Use
  Company Number: PHHY2010GB16947

PATIENT
  Sex: Male

DRUGS (1)
  1. EXELON [Suspect]
     Dosage: UNK

REACTIONS (3)
  - CYSTOSCOPY [None]
  - PROSTATIC OPERATION [None]
  - URINARY BLADDER POLYP [None]
